FAERS Safety Report 9824159 (Version 3)
Quarter: 2014Q1

REPORT INFORMATION
  Report Type: Spontaneous
  Country: US (occurrence: US)
  Receive Date: 20140116
  Receipt Date: 20140311
  Transmission Date: 20141002
  Serious: Yes (Death)
  Sender: FDA-Public Use
  Company Number: US-GLAXOSMITHKLINE-A1056392A

PATIENT
  Age: 76 Year
  Sex: Male

DRUGS (18)
  1. VENTOLIN HFA [Suspect]
     Indication: CHRONIC OBSTRUCTIVE PULMONARY DISEASE
     Dosage: 2PUFF AS REQUIRED
     Route: 055
  2. ADVAIR HFA [Suspect]
     Indication: CHRONIC OBSTRUCTIVE PULMONARY DISEASE
     Dosage: 1PUFF TWICE PER DAY
     Route: 055
  3. PULMICORT [Suspect]
     Indication: CHRONIC OBSTRUCTIVE PULMONARY DISEASE
     Route: 055
  4. IRON [Concomitant]
  5. CALCIUM + D [Concomitant]
  6. VITAMIN D3 [Concomitant]
  7. NEXIUM [Concomitant]
  8. DIAZEPAM [Concomitant]
  9. METOPROLOL [Concomitant]
  10. VITAMIN B12 [Concomitant]
  11. LASIX [Concomitant]
  12. ALLOPURINOL [Concomitant]
  13. POTASSIUM CHLORIDE [Concomitant]
  14. OXYCODONE [Concomitant]
  15. FLONASE [Concomitant]
  16. ARTIFICIAL TEARS [Concomitant]
  17. PREDNISONE [Concomitant]
  18. INSULIN [Concomitant]

REACTIONS (6)
  - Pneumonia aspiration [Fatal]
  - Cerebrovascular accident [Unknown]
  - Atrial fibrillation [Unknown]
  - Gastrointestinal haemorrhage [Unknown]
  - Colitis [Unknown]
  - Drug ineffective [Unknown]
